FAERS Safety Report 24415193 (Version 1)
Quarter: 2024Q4

REPORT INFORMATION
  Report Type: Spontaneous
  Country: US (occurrence: US)
  Receive Date: 20241009
  Receipt Date: 20241009
  Transmission Date: 20250114
  Serious: No
  Sender: UROGEN PHARMA
  Company Number: US-UROGEN PHARMA LTD.-2024-UGN-000124

PATIENT

DRUGS (2)
  1. JELMYTO [Suspect]
     Active Substance: MITOMYCIN
     Indication: Malignant neoplasm of renal pelvis
     Dosage: 80 MILLIGRAM, ONCE A WEEK (INSTILLATION)
     Dates: start: 20240710, end: 20240710
  2. JELMYTO [Suspect]
     Active Substance: MITOMYCIN
     Dosage: 80 MILLIGRAM, ONCE A WEEK (INSTILLATION)
     Dates: start: 20240717, end: 20240717

REACTIONS (2)
  - Instillation site haemorrhage [Unknown]
  - Off label use [Unknown]

NARRATIVE: CASE EVENT DATE: 20240710
